FAERS Safety Report 9196724 (Version 1)
Quarter: 2013Q1

REPORT INFORMATION
  Report Type: Spontaneous
  Country: CH (occurrence: CH)
  Receive Date: 20130328
  Receipt Date: 20130328
  Transmission Date: 20140127
  Serious: Yes (Hospitalization, Other)
  Sender: FDA-Public Use
  Company Number: CH-B.I. PHARMACEUTICALS,INC./RIDGEFIELD-2013-AP-00257SI

PATIENT
  Age: 66 Year
  Sex: Male

DRUGS (2)
  1. PRADIF T [Suspect]
     Dosage: 0.4 MG
     Route: 048
     Dates: start: 20130201, end: 20130208
  2. LIVAZO [Suspect]
     Dosage: 1 MG
     Route: 048

REACTIONS (15)
  - Hypoaesthesia oral [Recovered/Resolved]
  - Syncope [Recovered/Resolved]
  - Cerebral infarction [Unknown]
  - Cerebral ischaemia [Recovered/Resolved]
  - IIIrd nerve disorder [Recovered/Resolved]
  - Aphasia [Recovered/Resolved]
  - Disturbance in attention [Unknown]
  - Coma [None]
  - Headache [None]
  - Dizziness [None]
  - Heart rate decreased [None]
  - Hypersomnia [None]
  - Thalamic infarction [None]
  - Embolic stroke [None]
  - Arrhythmia [None]
